FAERS Safety Report 7455364-1 (Version None)
Quarter: 2011Q2

REPORT INFORMATION
  Report Type: 
  Country: None (occurrence: None)
  Receive Date: 20110503
  Receipt Date: 20101022
  Transmission Date: 20111010
  Serious: No
  Sender: FDA-Public Use
  Company Number: US-TYCO HEALTHCARE/MALLINCKRODT-T201002176

PATIENT
  Sex: Male

DRUGS (1)
  1. ACETAMINOPHEN AND HYDROCODONE BITARTRATE [Suspect]
     Dosage: UNK
     Route: 065

REACTIONS (4)
  - HEART RATE INCREASED [None]
  - MUSCLE TWITCHING [None]
  - DRUG INEFFECTIVE [None]
  - ERYTHEMA [None]
